FAERS Safety Report 6885264-7 (Version None)
Quarter: 2010Q3

REPORT INFORMATION
  Report Type: 
  Country: None (occurrence: None)
  Receive Date: 20100729
  Receipt Date: 20100722
  Transmission Date: 20110219
  Serious: Yes (Other)
  Sender: FDA-Public Use
  Company Number: US-AMGEN-QUU403577

PATIENT
  Sex: Female

DRUGS (3)
  1. ENBREL [Suspect]
     Indication: PSORIATIC ARTHROPATHY
  2. ZONISAMIDE [Concomitant]
  3. NAPROXEN [Concomitant]

REACTIONS (7)
  - ARTHRALGIA [None]
  - HYPOCALCAEMIA [None]
  - IMMUNODEFICIENCY [None]
  - MIGRAINE [None]
  - PROCEDURAL COMPLICATION [None]
  - PULMONARY VALVE DISEASE [None]
  - VACCINATION FAILURE [None]
